FAERS Safety Report 7341607-1 (Version None)
Quarter: 2011Q1

REPORT INFORMATION
  Report Type: 
  Country: None (occurrence: None)
  Receive Date: 20110301
  Receipt Date: 20110223
  Transmission Date: 20110831
  Serious: Yes (Disabling)
  Sender: FDA-Public Use
  Company Number: DE-1185124

PATIENT
  Sex: Male

DRUGS (2)
  1. CARDIOVASCULAR SYSTEM DRUGS [Concomitant]
  2. TRAVATAN [Suspect]
     Dosage: OPHTHALMIC
     Route: 047

REACTIONS (1)
  - ANOSMIA [None]
